FAERS Safety Report 23260778 (Version 1)
Quarter: 2023Q4

REPORT INFORMATION
  Report Type: Other
  Country: FR (occurrence: FR)
  Receive Date: 20231205
  Receipt Date: 20231205
  Transmission Date: 20240109
  Serious: Yes (Life-Threatening, Hospitalization)
  Sender: FDA-Public Use
  Company Number: None

PATIENT

DRUGS (2)
  1. LEVOFLOXACIN [Suspect]
     Active Substance: LEVOFLOXACIN
     Indication: Post procedural infection
     Dosage: 500 MILLIGRAM, BID
     Route: 048
     Dates: start: 20231104
  2. RIFAMPIN [Suspect]
     Active Substance: RIFAMPIN
     Indication: Post procedural infection
     Dosage: 600 MILLIGRAM, BID
     Route: 048
     Dates: start: 20231104, end: 20231110

REACTIONS (2)
  - Vomiting [Not Recovered/Not Resolved]
  - Diarrhoea [Not Recovered/Not Resolved]

NARRATIVE: CASE EVENT DATE: 20231110
